FAERS Safety Report 4473118-5 (Version None)
Quarter: 2004Q4

REPORT INFORMATION
  Report Type: 
  Country: None (occurrence: None)
  Receive Date: 20041007
  Receipt Date: 20041007
  Transmission Date: 20050328
  Serious: Yes (Hospitalization, Disabling)
  Sender: FDA-Public Use
  Company Number: None

PATIENT
  Age: 18 Year
  Sex: Male

DRUGS (1)
  1. PENICILLAMINE [Suspect]
     Indication: HEPATO-LENTICULAR DEGENERATION
     Dates: start: 19881201, end: 19970101

REACTIONS (3)
  - ABASIA [None]
  - MUSCLE CONTRACTURE [None]
  - PAIN [None]
